FAERS Safety Report 9527467 (Version 1)
Quarter: 2013Q3

REPORT INFORMATION
  Report Type: Spontaneous
  Country: BR (occurrence: BR)
  Receive Date: 20130917
  Receipt Date: 20130917
  Transmission Date: 20140515
  Serious: Yes (Death, Other)
  Sender: FDA-Public Use
  Company Number: BR-ALEXION PHARMACEUTICALS INC.-A201302225

PATIENT
  Age: 6 Year
  Sex: Male

DRUGS (6)
  1. SOLIRIS 300MG [Suspect]
     Indication: HAEMOLYTIC URAEMIC SYNDROME
     Dosage: 300 MG, Q2W
     Route: 042
     Dates: start: 20130807
  2. VANCOMYCIN [Concomitant]
     Dosage: UNK
  3. TRIMETHOPRIM SULFAMETHOXAZOLE [Concomitant]
     Dosage: UNK
  4. OCTREOTIDE [Concomitant]
     Dosage: UNK
  5. AMLODIPINE [Concomitant]
     Dosage: UNK
  6. HYDRALAZINE [Concomitant]
     Dosage: UNK

REACTIONS (5)
  - Respiratory failure [Fatal]
  - Chylothorax [Unknown]
  - Pneumothorax [Unknown]
  - Pneumonia [Unknown]
  - Diarrhoea [Unknown]
